FAERS Safety Report 16688936 (Version 1)
Quarter: 2019Q3

REPORT INFORMATION
  Report Type: Spontaneous
  Country: US (occurrence: US)
  Receive Date: 20190809
  Receipt Date: 20190809
  Transmission Date: 20191004
  Serious: No
  Sender: FDA-Public Use
  Company Number: US-JNJFOC-20190807975

PATIENT
  Age: 57 Year
  Sex: Male
  Weight: 93.07 kg

DRUGS (3)
  1. INVOKANA [Concomitant]
     Active Substance: CANAGLIFLOZIN
     Indication: DIABETES MELLITUS
     Route: 065
  2. METOPROLOL. [Concomitant]
     Active Substance: METOPROLOL
     Indication: CARDIAC DISORDER
  3. XARELTO [Suspect]
     Active Substance: RIVAROXABAN
     Indication: THROMBOSIS
     Dosage: SERIAL 100008190276
     Route: 048

REACTIONS (2)
  - Gingival bleeding [Not Recovered/Not Resolved]
  - Bleeding time prolonged [Recovered/Resolved]

NARRATIVE: CASE EVENT DATE: 201907
